FAERS Safety Report 9542968 (Version 1)
Quarter: 2013Q3

REPORT INFORMATION
  Report Type: Spontaneous
  Country: GB (occurrence: GB)
  Receive Date: 20130923
  Receipt Date: 20130923
  Transmission Date: 20140515
  Serious: Yes (Life-Threatening, Hospitalization, Other)
  Sender: FDA-Public Use
  Company Number: GB-PFIZER INC-2013269486

PATIENT
  Age: 60 Year
  Sex: Female

DRUGS (9)
  1. SPIRONOLACTONE [Suspect]
     Indication: DEPRESSION
     Dosage: 50 MG, 1X/DAY
     Route: 048
     Dates: start: 20080413, end: 20080424
  2. ASPIRIN [Concomitant]
     Dosage: 75 MG, 1X/DAY
  3. AMLODIPINE [Concomitant]
     Dosage: 10 MG, 1X/DAY
  4. FENOFIBRATE [Concomitant]
     Dosage: 200 MG, 1X/DAY
  5. SIMVASTATIN [Concomitant]
     Dosage: 40MG ONCE DAILY AT NIGHT
  6. BUMETANIDE [Concomitant]
     Dosage: 2MG ONCE DAILY EVERY MORNING
  7. NOVOMIX [Concomitant]
     Dosage: UNK
  8. CO-CODAMOL [Concomitant]
     Dosage: 30/500
  9. IRBESARTAN [Concomitant]
     Dosage: 150 MG, 1X/DAY
     Dates: start: 20080413

REACTIONS (5)
  - Product name confusion [Unknown]
  - Drug dispensing error [Unknown]
  - Hyperkalaemia [Recovered/Resolved]
  - Renal impairment [Recovered/Resolved]
  - Dry skin [Unknown]
